FAERS Safety Report 9261948 (Version 2)
Quarter: 2013Q2

REPORT INFORMATION
  Report Type: Spontaneous
  Country: US (occurrence: US)
  Receive Date: 20130429
  Receipt Date: 20130506
  Transmission Date: 20140414
  Serious: Yes (Other)
  Sender: FDA-Public Use
  Company Number: US-PFIZER INC-2013132477

PATIENT
  Age: 53 Year
  Sex: Female
  Weight: 65.76 kg

DRUGS (6)
  1. LYRICA [Suspect]
     Indication: FIBROMYALGIA
     Dosage: 75 MG, 3X/DAY
     Route: 048
     Dates: start: 2006
  2. LYRICA [Suspect]
     Dosage: 75 MG, 2X/DAY
     Dates: end: 201304
  3. HYDROCODONE [Concomitant]
     Dosage: 7.5 MG, UNK
  4. IBUPROFEN [Concomitant]
     Dosage: 200 MG, UNK
  5. TRAMADOL [Concomitant]
     Dosage: 50MG OR 100MG, 6X/DAY
  6. TIZANIDINE [Concomitant]
     Dosage: 4 MG, 1X/DAY

REACTIONS (6)
  - Bedridden [Not Recovered/Not Resolved]
  - Pain [Not Recovered/Not Resolved]
  - Activities of daily living impaired [Not Recovered/Not Resolved]
  - Intervertebral disc protrusion [Not Recovered/Not Resolved]
  - Gait disturbance [Not Recovered/Not Resolved]
  - Paraesthesia [Not Recovered/Not Resolved]
